FAERS Safety Report 15290087 (Version 3)
Quarter: 2018Q4

REPORT INFORMATION
  Report Type: Spontaneous
  Country: GB (occurrence: GB)
  Receive Date: 20180817
  Receipt Date: 20181024
  Transmission Date: 20190204
  Serious: Yes (Other)
  Sender: FDA-Public Use
  Company Number: GB-PFIZER INC-2018324722

PATIENT
  Age: 72 Year
  Sex: Female

DRUGS (1)
  1. DOXAZOSIN MESILATE [Suspect]
     Active Substance: DOXAZOSIN MESYLATE
     Indication: HYPERTENSION
     Dosage: 4 MG, DAILY
     Route: 048

REACTIONS (7)
  - Insomnia [Unknown]
  - Cerebrovascular accident [Unknown]
  - Muscle twitching [Unknown]
  - Drug ineffective [Unknown]
  - Cardiomegaly [Recovered/Resolved]
  - Heart rate increased [Unknown]
  - Tachycardia [Unknown]

NARRATIVE: CASE EVENT DATE: 20180703
